FAERS Safety Report 6220499-8 (Version None)
Quarter: 2009Q2

REPORT INFORMATION
  Report Type: 
  Country: None (occurrence: None)
  Receive Date: 20090610
  Receipt Date: 20090608
  Transmission Date: 20091009
  Serious: Yes (Life-Threatening, Hospitalization, Disabling)
  Sender: FDA-Public Use
  Company Number: GB-ASTRAZENECA-2009GB01292

PATIENT
  Age: 78 Year
  Sex: Female

DRUGS (5)
  1. QUETIAPINE FUMARATE [Suspect]
     Indication: KORSAKOFF'S PSYCHOSIS NON-ALCOHOLIC
     Dosage: 25 MG
     Route: 048
     Dates: end: 20090514
  2. ADCAL-D3 [Concomitant]
     Route: 048
  3. AMLODIPINE [Concomitant]
     Indication: HYPERTENSION
     Dosage: 5 MG
     Route: 048
     Dates: end: 20090514
  4. CHLORPHENIRAMINE MALEATE [Concomitant]
     Dosage: 50 MG
     Route: 048
     Dates: end: 20090514
  5. FUROSEMIDE [Concomitant]
     Dosage: 20 MG
     Route: 048
     Dates: end: 20090514

REACTIONS (3)
  - FACIAL PALSY [None]
  - ISCHAEMIC STROKE [None]
  - MUSCULAR WEAKNESS [None]
